FAERS Safety Report 17834717 (Version 2)
Quarter: 2020Q2

REPORT INFORMATION
  Report Type: Spontaneous
  Country: JP (occurrence: JP)
  Receive Date: 20200528
  Receipt Date: 20200609
  Transmission Date: 20200714
  Serious: Yes (Other)
  Sender: FDA-Public Use
  Company Number: JP-TEVA-2020-JP-1239428

PATIENT
  Age: 69 Year
  Sex: Female

DRUGS (4)
  1. DABIGATRAN ETEXILATE [Suspect]
     Active Substance: DABIGATRAN ETEXILATE
     Indication: CARDIAC VENTRICULAR THROMBOSIS
  2. UFT [Concomitant]
     Active Substance: TEGAFUR\URACIL
     Indication: LUNG ADENOCARCINOMA STAGE I
  3. ANASTROZOLE. [Suspect]
     Active Substance: ANASTROZOLE
     Indication: INVASIVE DUCTAL BREAST CARCINOMA
     Route: 065
  4. DABIGATRAN ETEXILATE [Suspect]
     Active Substance: DABIGATRAN ETEXILATE
     Indication: ATRIAL THROMBOSIS

REACTIONS (4)
  - Renal infarct [Unknown]
  - Cardiac ventricular thrombosis [Recovered/Resolved]
  - Atrial thrombosis [Recovered/Resolved]
  - Drug ineffective [Unknown]
